FAERS Safety Report 23386059 (Version 2)
Quarter: 2024Q1

REPORT INFORMATION
  Report Type: Spontaneous
  Country: FR (occurrence: FR)
  Receive Date: 20240110
  Receipt Date: 20240227
  Transmission Date: 20240410
  Serious: Yes (Hospitalization)
  Sender: FDA-Public Use
  Company Number: FR-SANDOZ-SDZ2024FR002108

PATIENT
  Age: 30 Year
  Sex: Male

DRUGS (17)
  1. ALPRAZOLAM [Suspect]
     Active Substance: ALPRAZOLAM
     Indication: Product used for unknown indication
     Dosage: 2 MG IN 1 DAY
     Route: 048
     Dates: start: 2023
  2. BROMAZEPAM [Suspect]
     Active Substance: BROMAZEPAM
     Indication: Product used for unknown indication
     Dosage: 3 MG IN 1 DAY
     Route: 048
     Dates: start: 2023
  3. CANNABIS SATIVA SUBSP. INDICA TOP [Suspect]
     Active Substance: CANNABIS SATIVA SUBSP. INDICA TOP
     Indication: Product used for unknown indication
     Dosage: UNK
     Route: 065
     Dates: start: 2011
  4. CLORAZEPATE DIPOTASSIUM [Suspect]
     Active Substance: CLORAZEPATE DIPOTASSIUM
     Indication: Product used for unknown indication
     Dosage: 30 MG, TID PLASMA PEAK 1H, THEREFORE MORE ADDICTIVE
     Route: 065
  5. COCAINE [Suspect]
     Active Substance: COCAINE
     Dosage: (18 YRS)- ONGOING, IV OR SNORTED, 1G/D 5 (RELATED CASES: AV-MPL 23-584, ENDOCARDITIS, SEVERE UNDERNU
     Route: 065
     Dates: start: 2011
  6. COCAINE [Suspect]
     Active Substance: COCAINE
     Indication: Product used for unknown indication
     Dosage: IV OR SNORTED, 1G/D 5
     Route: 065
     Dates: start: 2011
  7. DIAZEPAM [Suspect]
     Active Substance: DIAZEPAM
     Indication: Anxiety
     Dosage: 30 MG MORNING, NOON AND EVENING, THEN INCREASE TO 6X/DAY
     Route: 048
     Dates: start: 2023
  8. DIAZEPAM [Suspect]
     Active Substance: DIAZEPAM
     Dosage: 60 MG/DAY DIVIDED INTO 6 DOSES: INEFFECTIVE ACCORDING TO THE PATIENT ON HIS ANXIETY
     Route: 048
  9. PRAZEPAM [Suspect]
     Active Substance: PRAZEPAM
     Indication: Product used for unknown indication
     Dosage: 10 MG, TID PLASMA PEAK 4-6H, 10-10-10
     Route: 065
  10. METHADONE [Suspect]
     Active Substance: METHADONE HYDROCHLORIDE
     Indication: Product used for unknown indication
     Dosage: 60 MG IN 1 DAY
     Route: 065
     Dates: start: 2023
  11. OLANZAPINE [Suspect]
     Active Substance: OLANZAPINE
     Indication: Product used for unknown indication
     Dosage: UNK
     Route: 065
     Dates: start: 2023
  12. OXYCODONE [Suspect]
     Active Substance: OXYCODONE\OXYCODONE HYDROCHLORIDE
     Indication: Pain
     Dosage: UNK
     Route: 065
  13. METHYLPHENIDATE HYDROCHLORIDE [Suspect]
     Active Substance: METHYLPHENIDATE HYDROCHLORIDE
     Indication: Product used for unknown indication
     Dosage: 30 MG IN 1 DAY
     Route: 065
     Dates: start: 2023
  14. METHYLPHENIDATE HYDROCHLORIDE [Suspect]
     Active Substance: METHYLPHENIDATE HYDROCHLORIDE
     Dosage: 40 MG, TID
     Route: 065
  15. TRANXENE [Suspect]
     Active Substance: CLORAZEPATE DIPOTASSIUM
     Indication: Product used for unknown indication
     Dosage: FREQUENCY: TID, PLASMA PEAK 1H, THEREFORE MORE ADDICTIVE
     Route: 065
  16. VALIUM [Suspect]
     Active Substance: DIAZEPAM
     Indication: Product used for unknown indication
     Dosage: 10 MG, QD FREQUENCY: MORNING, NOON AND EVENING, THEN INCREASE TO 6X/DAY
     Route: 065
     Dates: start: 2023
  17. ZOLPIDEM [Suspect]
     Active Substance: ZOLPIDEM TARTRATE
     Indication: Product used for unknown indication
     Dosage: 10 MG IN 1 DAY
     Route: 048
     Dates: start: 2023

REACTIONS (2)
  - Endocarditis [Unknown]
  - Drug use disorder [Unknown]

NARRATIVE: CASE EVENT DATE: 20230101
